FAERS Safety Report 22176927 (Version 1)
Quarter: 2023Q2

REPORT INFORMATION
  Report Type: Spontaneous
  Country: US (occurrence: US)
  Receive Date: 20230405
  Receipt Date: 20230405
  Transmission Date: 20230722
  Serious: Yes (Death, Other)
  Sender: FDA-Public Use
  Company Number: US-DSJP-DSU-2023-113074

PATIENT
  Age: 58 Year
  Sex: Female

DRUGS (2)
  1. ENHERTU [Suspect]
     Active Substance: FAM-TRASTUZUMAB DERUXTECAN-NXKI
     Indication: Neoplasm malignant
     Route: 065
  2. PEMBROLIZUMAB [Concomitant]
     Active Substance: PEMBROLIZUMAB
     Indication: Neoplasm malignant

REACTIONS (4)
  - Death [Fatal]
  - Acute myeloid leukaemia [Unknown]
  - Metastases to lung [Unknown]
  - Off label use [Unknown]
